FAERS Safety Report 16394726 (Version 1)
Quarter: 2019Q3

REPORT INFORMATION
  Report Type: Spontaneous
  Country: US (occurrence: US)
  Receive Date: 20190604
  Receipt Date: 20190604
  Transmission Date: 20191004
  Serious: Yes (Hospitalization)
  Sender: FDA-Public Use
  Company Number: None

PATIENT
  Sex: Female

DRUGS (10)
  1. OXYCOD [Concomitant]
  2. ATORVASTATIN [Concomitant]
     Active Substance: ATORVASTATIN
  3. FENTANYL. [Concomitant]
     Active Substance: FENTANYL
  4. CAPECITABINE. [Suspect]
     Active Substance: CAPECITABINE
     Indication: ANAL CANCER
     Dosage: ?          OTHER FREQUENCY:BID ON SELECT DAYS;?
     Route: 048
     Dates: start: 20190403
  5. AMLODIPINE [Concomitant]
     Active Substance: AMLODIPINE BESYLATE
  6. LIDOCAINE. [Concomitant]
     Active Substance: LIDOCAINE
  7. HYDROMORPHON [Concomitant]
     Active Substance: HYDROMORPHONE
  8. CAPECITABINE. [Suspect]
     Active Substance: CAPECITABINE
     Indication: ANAL CANCER
     Dosage: ?          OTHER FREQUENCY:BID ON SELECT DAYS;?
     Route: 048
     Dates: start: 20190403
  9. LEVOTHYROXIN [Concomitant]
     Active Substance: LEVOTHYROXINE
  10. LISINOPRIL. [Concomitant]
     Active Substance: LISINOPRIL

REACTIONS (1)
  - Hospitalisation [None]
